FAERS Safety Report 4842499-2 (Version None)
Quarter: 2005Q4

REPORT INFORMATION
  Report Type: 
  Country: None (occurrence: None)
  Receive Date: 20051201
  Receipt Date: 20051018
  Transmission Date: 20060501
  Serious: Yes (Disabling, Other)
  Sender: FDA-Public Use
  Company Number: PHBS2005JP15323

PATIENT
  Age: 63 Year
  Sex: Male

DRUGS (1)
  1. NEORAL [Suspect]
     Indication: GLOMERULONEPHRITIS MEMBRANOUS
     Dosage: 75 MG, BID
     Route: 048

REACTIONS (4)
  - ANGINA PECTORIS [None]
  - ARTERIOSPASM CORONARY [None]
  - DRUG LEVEL INCREASED [None]
  - ELECTROCARDIOGRAM ABNORMAL [None]
